FAERS Safety Report 5179132-9 (Version None)
Quarter: 2006Q4

REPORT INFORMATION
  Report Type: 
  Country: None (occurrence: None)
  Receive Date: 20061219
  Receipt Date: 20060515
  Transmission Date: 20070319
  Serious: Yes (Hospitalization)
  Sender: FDA-Public Use
  Company Number: US-KINGPHARMUSA00001-K200600628

PATIENT
  Age: 72 Year
  Sex: Male

DRUGS (6)
  1. ALTACE [Suspect]
     Dosage: 10 MG, QD
     Route: 048
  2. ALLOPURINOL [Concomitant]
     Dosage: 100 MG, QD
     Route: 048
  3. FUROSEMIDE [Concomitant]
     Dosage: 40 MG, QD
     Route: 048
  4. APROVEL [Concomitant]
     Dosage: 150 MG, UNK
     Route: 048
  5. TAHOR [Concomitant]
     Dosage: 20 MG, UNK
     Route: 048
  6. DILRENE [Concomitant]
     Dosage: 300 MG, UNK
     Route: 048

REACTIONS (6)
  - ALOPECIA [None]
  - LICHENOID KERATOSIS [None]
  - PRURITUS [None]
  - RASH ERYTHEMATOUS [None]
  - RASH MACULO-PAPULAR [None]
  - SKIN NODULE [None]
